FAERS Safety Report 8298160-8 (Version None)
Quarter: 2012Q2

REPORT INFORMATION
  Report Type: 
  Country: None (occurrence: None)
  Receive Date: 20120419
  Receipt Date: 20120228
  Transmission Date: 20120825
  Serious: Yes (Other)
  Sender: FDA-Public Use
  Company Number: US-BRISTOL-MYERS SQUIBB COMPANY-16234684

PATIENT
  Age: 77 Year
  Sex: Male
  Weight: 86 kg

DRUGS (3)
  1. ATENOLOL [Concomitant]
  2. VITARINE [Concomitant]
  3. YERVOY [Suspect]
     Indication: MALIGNANT MELANOMA
     Dosage: 4 DOSES.
     Route: 042
     Dates: start: 20110420, end: 20110708

REACTIONS (3)
  - NEOPLASM MALIGNANT [None]
  - DRY MOUTH [None]
  - HYPOAESTHESIA [None]
